FAERS Safety Report 10263569 (Version 3)
Quarter: 2015Q3

REPORT INFORMATION
  Report Type: Spontaneous
  Country: US (occurrence: US)
  Receive Date: 20140626
  Receipt Date: 20150817
  Transmission Date: 20151125
  Serious: No
  Sender: FDA-Public Use
  Company Number: US-GILEAD-2014-0106733

PATIENT
  Age: 54 Year
  Sex: Male

DRUGS (3)
  1. LETAIRIS [Suspect]
     Active Substance: AMBRISENTAN
     Indication: RIGHT VENTRICULAR FAILURE
     Dosage: 10 MG, QD
     Route: 065
     Dates: start: 20140512
  2. LETAIRIS [Suspect]
     Active Substance: AMBRISENTAN
     Indication: PULMONARY HYPERTENSION
  3. LETAIRIS [Suspect]
     Active Substance: AMBRISENTAN
     Indication: RENAL FAILURE

REACTIONS (1)
  - Peripheral swelling [Recovering/Resolving]
